FAERS Safety Report 12985681 (Version 1)
Quarter: 2016Q4

REPORT INFORMATION
  Report Type: Spontaneous
  Country: JP (occurrence: JP)
  Receive Date: 20161130
  Receipt Date: 20161130
  Transmission Date: 20170207
  Serious: Yes (Other)
  Sender: FDA-Public Use
  Company Number: JP-ACCORD-045914

PATIENT
  Age: 75 Year
  Sex: Male

DRUGS (3)
  1. IMMUNOGLOBULIN G HUMAN [Concomitant]
     Active Substance: HUMAN IMMUNOGLOBULIN G
     Indication: CHRONIC INFLAMMATORY DEMYELINATING POLYRADICULONEUROPATHY
     Dosage: TOTAL DOSE: 2 G/KG
     Route: 042
  2. TACROLIMUS. [Suspect]
     Active Substance: TACROLIMUS
     Indication: CHRONIC INFLAMMATORY DEMYELINATING POLYRADICULONEUROPATHY
     Dosage: BLOOD CONCENTRATION ABOUT 12 HR AFTER ORAL ADMINISTRATION WAS 3-5 NG/ML
     Route: 048
     Dates: start: 201310, end: 201411
  3. CICLOSPORIN [Suspect]
     Active Substance: CYCLOSPORINE
     Indication: CHRONIC INFLAMMATORY DEMYELINATING POLYRADICULONEUROPATHY
     Dosage: BLOOD CONCENTRATION TROUGH WAS MAINTAINED AT 60-150 NG/ML
     Route: 048
     Dates: start: 200506, end: 201305

REACTIONS (2)
  - Renal disorder [Recovered/Resolved]
  - Disease progression [Recovered/Resolved]
